FAERS Safety Report 7832175-6 (Version None)
Quarter: 2011Q4

REPORT INFORMATION
  Report Type: 
  Country: None (occurrence: None)
  Receive Date: 20111022
  Receipt Date: 20111013
  Transmission Date: 20120403
  Serious: Yes (Other)
  Sender: FDA-Public Use
  Company Number: US-BAYER-2011-064821

PATIENT
  Age: 57 Year
  Sex: Male

DRUGS (2)
  1. SORAFENIB (RAF KINASE INHIBITOR) [Suspect]
     Indication: HEPATIC NEOPLASM MALIGNANT
     Dosage: 400 MG, BID
     Dates: start: 20110720
  2. REGLAN [Concomitant]
     Dosage: 10 MG, BID (AC + HS)

REACTIONS (3)
  - FATIGUE [None]
  - APHAGIA [None]
  - ASTHENIA [None]
